FAERS Safety Report 11304288 (Version 1)
Quarter: 2015Q3

REPORT INFORMATION
  Report Type: Spontaneous
  Country: US (occurrence: US)
  Receive Date: 20150723
  Receipt Date: 20150723
  Transmission Date: 20151125
  Serious: No
  Sender: FDA-Public Use
  Company Number: US-JNJFOC-20150623040

PATIENT
  Age: 52 Year
  Sex: Female
  Weight: 53.52 kg

DRUGS (15)
  1. VITAMIN B COMPLEX [Concomitant]
     Active Substance: CYANOCOBALAMIN\DEXPANTHENOL\NIACINAMIDE\PYRIDOXINE HYDROCHLORIDE\RIBOFLAVIN 5^-PHOSPHATE SODIUM\THIAMINE HYDROCHLORIDE\VITAMIN B COMPLEX
     Indication: NUTRITIONAL SUPPLEMENTATION
     Route: 065
  2. VITAMIN D3 [Concomitant]
     Active Substance: CHOLECALCIFEROL
     Indication: NUTRITIONAL SUPPLEMENTATION
     Route: 065
  3. PEPCID AC [Suspect]
     Active Substance: FAMOTIDINE
     Indication: ULCER
     Dosage: AT NIGHT
     Route: 048
     Dates: start: 20150626
  4. VITAMIN C [Concomitant]
     Active Substance: ASCORBIC ACID
     Indication: NUTRITIONAL SUPPLEMENTATION
     Route: 065
  5. TAURINE [Concomitant]
     Active Substance: TAURINE
     Indication: NUTRITIONAL SUPPLEMENTATION
     Route: 065
  6. PEPCID AC MAXIMUM STRENGTH [Suspect]
     Active Substance: FAMOTIDINE
     Indication: ULCER
     Dosage: IN THE MORNING
     Route: 048
  7. ANTIOXIDANT NOS [Concomitant]
     Indication: DETOXIFICATION
     Route: 065
  8. VITAMIN A [Concomitant]
     Active Substance: VITAMIN A
     Indication: NUTRITIONAL SUPPLEMENTATION
     Route: 065
  9. PEPCID AC MAXIMUM STRENGTH [Suspect]
     Active Substance: FAMOTIDINE
     Indication: GASTROOESOPHAGEAL REFLUX DISEASE
     Dosage: IN THE MORNING
     Route: 048
  10. GLUTATHIONE [Concomitant]
     Active Substance: GLUTATHIONE
     Indication: DETOXIFICATION
     Route: 065
  11. PEPCID AC [Suspect]
     Active Substance: FAMOTIDINE
     Indication: GASTROOESOPHAGEAL REFLUX DISEASE
     Dosage: AT NIGHT
     Route: 048
     Dates: start: 20150626
  12. MAGNESIUM [Concomitant]
     Active Substance: MAGNESIUM
     Indication: NUTRITIONAL SUPPLEMENTATION
     Route: 065
  13. VITAMIN E [Concomitant]
     Active Substance: .ALPHA.-TOCOPHEROL
     Indication: NUTRITIONAL SUPPLEMENTATION
     Route: 065
  14. CALCIUM [Concomitant]
     Active Substance: CALCIUM
     Indication: NUTRITIONAL SUPPLEMENTATION
     Route: 065
  15. MINERAL SUPPLEMENTS [Concomitant]
     Active Substance: UNSPECIFIED INGREDIENT
     Indication: NUTRITIONAL SUPPLEMENTATION
     Route: 065

REACTIONS (2)
  - Diarrhoea [Recovered/Resolved]
  - Product use issue [Recovered/Resolved]

NARRATIVE: CASE EVENT DATE: 2015
